FAERS Safety Report 22012664 (Version 1)
Quarter: 2023Q1

REPORT INFORMATION
  Report Type: Spontaneous
  Country: None (occurrence: FR)
  Receive Date: 20230220
  Receipt Date: 20230220
  Transmission Date: 20230418
  Serious: Yes (Other)
  Sender: FDA-Public Use
  Company Number: FR-B.Braun Medical Inc.-2138194

PATIENT
  Age: 28 Year
  Sex: Male

DRUGS (5)
  1. ACETAMINOPHEN [Suspect]
     Active Substance: ACETAMINOPHEN
  2. CAFFEINE [Suspect]
     Active Substance: CAFFEINE
  3. HEROIN [Suspect]
     Active Substance: DIAMORPHINE
  4. CANNABIS SATIVA SUBSP. INDICA TOP [Suspect]
     Active Substance: CANNABIS SATIVA SUBSP. INDICA TOP
  5. ALCOHOL [Suspect]
     Active Substance: ALCOHOL

REACTIONS (1)
  - Drug abuse [Not Recovered/Not Resolved]
